FAERS Safety Report 4941551-0 (Version None)
Quarter: 2006Q1

REPORT INFORMATION
  Report Type: 
  Country: None (occurrence: None)
  Receive Date: 20060308
  Receipt Date: 20060224
  Transmission Date: 20060701
  Serious: Yes (Other)
  Sender: FDA-Public Use
  Company Number: 2006JP000479

PATIENT
  Age: 61 Year
  Sex: Female

DRUGS (3)
  1. FUNGUARD(MICAFUNGIN) INJECTION [Suspect]
     Indication: BLOOD BETA-D-GLUCAN INCREASED
     Dosage: 300 MG, IV DRIP
     Route: 041
     Dates: start: 20060131
  2. MODACIN (CEFTAZIDIME) [Suspect]
     Dosage: 2 G/D IV DRIP
     Route: 041
     Dates: start: 20060215
  3. ISOTONIC SOLUTIONS INJECTION [Concomitant]

REACTIONS (3)
  - INFUSION RELATED REACTION [None]
  - INJECTION SITE ULCER [None]
  - SKIN ULCER [None]
